FAERS Safety Report 11616595 (Version 1)
Quarter: 2015Q4

REPORT INFORMATION
  Report Type: Spontaneous
  Country: SE (occurrence: SE)
  Receive Date: 20151009
  Receipt Date: 20151009
  Transmission Date: 20160304
  Serious: Yes (Hospitalization)
  Sender: FDA-Public Use
  Company Number: SE-009507513-1510SWE004170

PATIENT
  Sex: Female

DRUGS (2)
  1. MONTELUKAST SODIUM. [Suspect]
     Active Substance: MONTELUKAST SODIUM
     Dosage: UNK
     Route: 048
  2. MULTAQ [Suspect]
     Active Substance: DRONEDARONE
     Route: 048

REACTIONS (2)
  - Dizziness [Recovered/Resolved]
  - Syncope [Recovered/Resolved]
